FAERS Safety Report 25910567 (Version 1)
Quarter: 2025Q4

REPORT INFORMATION
  Report Type: Spontaneous
  Country: US (occurrence: US)
  Receive Date: 20251013
  Receipt Date: 20251013
  Transmission Date: 20260119
  Serious: No
  Sender: TEVA
  Company Number: US-TEVA-VS-3375437

PATIENT
  Age: 49 Year
  Sex: Female

DRUGS (4)
  1. MODAFINIL [Suspect]
     Active Substance: MODAFINIL
     Indication: Product used for unknown indication
     Dosage: BID (200 MG IN THE MORNING AND 100 MG IN THE AFTERNOON)
     Route: 065
     Dates: start: 20250819
  2. MODAFINIL [Suspect]
     Active Substance: MODAFINIL
     Indication: Product used for unknown indication
     Dosage: QD IN THE AFTERNOON
     Route: 065
     Dates: start: 20250820
  3. MODAFINIL [Suspect]
     Active Substance: MODAFINIL
     Indication: Product used for unknown indication
     Dosage: BID (200 MG IN THE MORNING AND 100 MG IN THE AFTERNOON)
     Route: 065
     Dates: start: 20250821
  4. LUMRYZ [Suspect]
     Active Substance: SODIUM OXYBATE
     Indication: Narcolepsy
     Dosage: ONCE NIGHTLY, Q.H.S
     Route: 048
     Dates: start: 20250819

REACTIONS (4)
  - Fatigue [Not Recovered/Not Resolved]
  - Somnolence [Not Recovered/Not Resolved]
  - Drug ineffective [Unknown]
  - Acne [Recovered/Resolved]
